FAERS Safety Report 5640120-7 (Version None)
Quarter: 2008Q1

REPORT INFORMATION
  Report Type: 
  Country: None (occurrence: None)
  Receive Date: 20080225
  Receipt Date: 20080218
  Transmission Date: 20080703
  Serious: Yes (Other)
  Sender: FDA-Public Use
  Company Number: A0711392A

PATIENT
  Age: 54 Year
  Sex: Female
  Weight: 59.8748 kg

DRUGS (7)
  1. ADVAIR DISKUS 100/50 [Suspect]
     Indication: ASTHMA
     Dosage: INHALED
     Route: 055
     Dates: start: 19970101, end: 19990101
  2. SEREVENT [Suspect]
     Indication: ASTHMA
     Dosage: TWICE PER DAY
     Dates: start: 19980101, end: 20080215
  3. ADVAIR DISKUS 100/50 [Suspect]
     Indication: ASTHMA
     Dosage: PER DAY / INHALED
     Route: 055
     Dates: start: 20080216
  4. BAMIFYLLINE HYDROCHLORIDE [Concomitant]
  5. FLUTICASONE PROPIONATE [Concomitant]
  6. LEVOTHYROXINE SODIUM [Concomitant]
  7. IMMUNOTHERAPY [Concomitant]

REACTIONS (5)
  - ASTHMA [None]
  - CHEST DISCOMFORT [None]
  - CONDITION AGGRAVATED [None]
  - MUSCLE SPASMS [None]
  - MUSCULOSKELETAL DISCOMFORT [None]
